FAERS Safety Report 10189083 (Version 2)
Quarter: 2014Q3

REPORT INFORMATION
  Report Type: Spontaneous
  Country: US (occurrence: US)
  Receive Date: 20140522
  Receipt Date: 20140829
  Transmission Date: 20150326
  Serious: Yes (Hospitalization)
  Sender: FDA-Public Use
  Company Number: US-BAYER-2014-076055

PATIENT
  Age: 33 Year
  Sex: Female
  Weight: 61.22 kg

DRUGS (1)
  1. MIRENA [Suspect]
     Active Substance: LEVONORGESTREL
     Indication: CONTRACEPTION
     Dosage: 20 MCG/24HR, CONT
     Route: 015
     Dates: start: 20090322, end: 20140502

REACTIONS (5)
  - Device dislocation [Recovered/Resolved]
  - Abdominal pain upper [None]
  - Menstruation irregular [None]
  - Uterine perforation [Recovered/Resolved]
  - Menorrhagia [None]

NARRATIVE: CASE EVENT DATE: 2014
